FAERS Safety Report 15477995 (Version 1)
Quarter: 2018Q4

REPORT INFORMATION
  Report Type: Spontaneous
  Country: GB (occurrence: GB)
  Receive Date: 20181009
  Receipt Date: 20181009
  Transmission Date: 20190205
  Serious: Yes (Hospitalization, Other)
  Sender: FDA-Public Use
  Company Number: GB-HIKMA PHARMACEUTICALS USA INC.-GB-H14001-18-07725

PATIENT
  Age: 10 Year
  Sex: Female
  Weight: 29.5 kg

DRUGS (1)
  1. CO-AMOXICLAV [Suspect]
     Active Substance: AMOXICILLIN\CLAVULANATE POTASSIUM
     Indication: ANIMAL BITE
     Dosage: 250MG/62MG/5ML ()
     Route: 048

REACTIONS (4)
  - Colitis ulcerative [Unknown]
  - Dehydration [Unknown]
  - Diarrhoea haemorrhagic [Recovering/Resolving]
  - Abdominal pain [Unknown]

NARRATIVE: CASE EVENT DATE: 20180607
